FAERS Safety Report 6788593-0 (Version None)
Quarter: 2010Q2

REPORT INFORMATION
  Report Type: 
  Country: None (occurrence: None)
  Receive Date: 20100623
  Receipt Date: 20080604
  Transmission Date: 20101027
  Serious: No
  Sender: FDA-Public Use
  Company Number: US-PFIZER INC-2008029782

PATIENT
  Sex: Female

DRUGS (5)
  1. GEODON [Suspect]
  2. ABILIFY [Interacting]
  3. TOPAMAX [Interacting]
  4. DEPAKOTE [Interacting]
  5. ZYPREXA [Concomitant]

REACTIONS (2)
  - AMMONIA INCREASED [None]
  - DRUG INTERACTION [None]
